FAERS Safety Report 22829957 (Version 3)
Quarter: 2023Q4

REPORT INFORMATION
  Report Type: Report from Study
  Country: KR (occurrence: KR)
  Receive Date: 20230816
  Receipt Date: 20231114
  Transmission Date: 20240109
  Serious: Yes (Hospitalization, Other)
  Sender: FDA-Public Use
  Company Number: KR-ONO-2023KR018890

PATIENT
  Age: 62 Year
  Sex: Male
  Weight: 81 kg

DRUGS (16)
  1. IPILIMUMAB [Suspect]
     Active Substance: IPILIMUMAB
     Indication: Gastric cancer
     Dosage: LAST DOSE RECEIVED PRIOR TO THE ONSET OF THE EVENT WAS ON 21-JUN-2023
     Dates: start: 20230317
  2. CAPECITABINE [Suspect]
     Active Substance: CAPECITABINE
     Indication: Gastric cancer
     Dosage: MOST RECENT DOSE OF 1500 MG/M2 WAS RECEIVED PRIOR TO THE ONSET OF THE EVENT WAS ON 20-JUL-2023
     Route: 048
     Dates: start: 20230317
  3. CAPECITABINE [Suspect]
     Active Substance: CAPECITABINE
     Dosage: MOST RECENT DOSE WAS RECEIVED ON 20-JUL-2023
     Route: 048
     Dates: start: 20230508, end: 20230720
  4. OXALIPLATIN [Suspect]
     Active Substance: OXALIPLATIN
     Indication: Gastric cancer
     Dosage: LAST DOSE OF 200 MG/M2 WAS RECEIVED PRIOR TO THE ONSET OF THE EVENT WAS ON 14-JUL-2023
     Dates: start: 20230317
  5. OXALIPLATIN [Suspect]
     Active Substance: OXALIPLATIN
     Dosage: MOST RECENT DOSE WAS RECEIVED ON 14-JUL-2023
     Dates: start: 20230508, end: 20230714
  6. ALOXI [Concomitant]
     Active Substance: PALONOSETRON HYDROCHLORIDE
     Indication: Product used for unknown indication
     Dosage: 0.25 MG
     Dates: start: 20230317
  7. DAEHWA MAGNESIUM OXIDE [Concomitant]
     Indication: Constipation
     Dosage: 1500 MG
     Route: 048
     Dates: start: 20230317
  8. GASTER [CROMOGLICATE SODIUM] [Concomitant]
     Indication: Product used for unknown indication
     Dosage: 40 MG
     Dates: start: 20230317
  9. MACPERAN [METOCLOPRAMIDE] [Concomitant]
     Indication: Product used for unknown indication
     Dosage: 10 MG
     Dates: start: 20230317
  10. MACPERAN [METOCLOPRAMIDE] [Concomitant]
     Dosage: 15 MG
     Dates: start: 20230317
  11. REBAMIPIDE [Concomitant]
     Active Substance: REBAMIPIDE
     Indication: Product used for unknown indication
     Dosage: 300 MG
     Dates: start: 20230317
  12. PENIRAMIN [Concomitant]
     Indication: Product used for unknown indication
     Dosage: 2 MG
     Dates: start: 20230317
  13. LAMISIL [Concomitant]
     Active Substance: TERBINAFINE HYDROCHLORIDE
     Indication: Pruritus
     Dosage: 1 G
     Route: 061
     Dates: start: 20230322
  14. UREA [Concomitant]
     Active Substance: UREA
     Indication: Palmar-plantar erythrodysaesthesia syndrome
     Dosage: 1 G
     Route: 061
     Dates: start: 20230407
  15. DULACKHAN EASY [Concomitant]
     Indication: Constipation
     Dates: start: 20230714
  16. ZYPREXA [Concomitant]
     Active Substance: OLANZAPINE
     Indication: Constipation
     Dates: start: 20230714

REACTIONS (1)
  - Sialoadenitis [Recovered/Resolved]

NARRATIVE: CASE EVENT DATE: 20230721
